FAERS Safety Report 9522214 (Version 1)
Quarter: 2013Q3

REPORT INFORMATION
  Report Type: Spontaneous
  Country: US (occurrence: None)
  Receive Date: 20130911
  Receipt Date: 20130911
  Transmission Date: 20140515
  Serious: Yes (Other)
  Sender: FDA-Public Use
  Company Number: US-ZYDUS-002192

PATIENT
  Age: 51 Year
  Sex: Male

DRUGS (2)
  1. RIBAVIRIN (RIBAVIRIN) [Suspect]
     Indication: HEPATITIS C
  2. PEGINTERFERON ALFA-2A (PEGINTERFERON ALFA-2A) [Suspect]
     Indication: HEPATITIS C

REACTIONS (3)
  - Tremor [None]
  - Bradykinesia [None]
  - Muscle rigidity [None]
